FAERS Safety Report 21223289 (Version 1)
Quarter: 2022Q3

REPORT INFORMATION
  Report Type: Spontaneous
  Country: US (occurrence: None)
  Receive Date: 20220816
  Receipt Date: 20220816
  Transmission Date: 20221027
  Serious: Yes (Hospitalization)
  Sender: FDA-Public Use
  Company Number: None

PATIENT
  Sex: Male

DRUGS (6)
  1. PYRIDOSTIGMINE [Suspect]
     Active Substance: PYRIDOSTIGMINE
     Route: 048
     Dates: start: 20220330
  2. BUDESONIDE [Concomitant]
     Active Substance: BUDESONIDE
  3. IPRATROPIUM BR [Concomitant]
  4. LEVALBUTEROL [Concomitant]
     Active Substance: LEVALBUTEROL
  5. SOD CHL [Concomitant]
  6. TRUE METRIX GLUCOSE TEST STRIPS [Concomitant]

REACTIONS (1)
  - Gastric disorder [None]
